FAERS Safety Report 8487282-4 (Version None)
Quarter: 2012Q3

REPORT INFORMATION
  Report Type: 
  Country: None (occurrence: None)
  Receive Date: 20120705
  Receipt Date: 20120627
  Transmission Date: 20120928
  Serious: No
  Sender: FDA-Public Use
  Company Number: US-BIOGENIDEC-2012BI022901

PATIENT
  Sex: Female

DRUGS (1)
  1. TYSABRI [Suspect]
     Indication: MULTIPLE SCLEROSIS
     Route: 042
     Dates: start: 20091127, end: 20111219

REACTIONS (4)
  - CONSTIPATION [None]
  - DYSPHAGIA [None]
  - DYSARTHRIA [None]
  - COORDINATION ABNORMAL [None]
